FAERS Safety Report 21079211 (Version 7)
Quarter: 2022Q4

REPORT INFORMATION
  Report Type: Report from Study
  Country: IL (occurrence: IL)
  Receive Date: 20220714
  Receipt Date: 20221124
  Transmission Date: 20230113
  Serious: Yes (Other)
  Sender: FDA-Public Use
  Company Number: IL-ABBVIE-22K-082-4459189-00

PATIENT
  Sex: Female

DRUGS (4)
  1. CARBIDOPA\LEVODOPA [Suspect]
     Active Substance: CARBIDOPA\LEVODOPA
     Indication: Parkinson^s disease
     Route: 050
     Dates: start: 20180512
  2. CARBIDOPA\LEVODOPA [Suspect]
     Active Substance: CARBIDOPA\LEVODOPA
     Dosage: MORNING DOSAGE(ML) 10.5, CONTINUOUS DOSAGE (ML/H) 2.9 , EXTRA DOSAGE (ML) 2.0
     Route: 050
  3. CARBIDOPA\LEVODOPA [Suspect]
     Active Substance: CARBIDOPA\LEVODOPA
     Dosage: CONTINUOUS DOSE HAS BEEN INCREASED SLIGHTLY AND EXTRA DOSE HAS BEEN DECREASED SLIGHTLY.
     Route: 050
  4. CARBIDOPA\LEVODOPA [Suspect]
     Active Substance: CARBIDOPA\LEVODOPA
     Dosage: MORNING DOSAGE(ML) 10.5, CONTINUOUS DOSAGE (ML/H) 3.2 , EXTRA DOSAGE (ML) 1.8?) REMAINS AT 16 HR
     Route: 050

REACTIONS (16)
  - Periumbilical abscess [Recovered/Resolved]
  - Stoma site inflammation [Recovered/Resolved]
  - Medical device site mass [Recovering/Resolving]
  - Medical device site swelling [Recovering/Resolving]
  - Candida infection [Recovering/Resolving]
  - Stoma site irritation [Unknown]
  - Stoma site erythema [Recovered/Resolved]
  - Stoma site reaction [Unknown]
  - Insomnia [Unknown]
  - Stoma site discharge [Recovered/Resolved]
  - Stoma site discharge [Not Recovered/Not Resolved]
  - Stoma site erythema [Unknown]
  - Stoma site discharge [Recovered/Resolved]
  - Device issue [Recovered/Resolved]
  - Movement disorder [Unknown]
  - Device issue [Unknown]

NARRATIVE: CASE EVENT DATE: 20220101
